FAERS Safety Report 21051433 (Version 1)
Quarter: 2022Q3

REPORT INFORMATION
  Report Type: Spontaneous
  Country: US (occurrence: None)
  Receive Date: 20220706
  Receipt Date: 20220706
  Transmission Date: 20221026
  Serious: Yes (Death)
  Sender: FDA-Public Use
  Company Number: None

PATIENT
  Sex: Female

DRUGS (3)
  1. TOBRAMYCIN [Suspect]
     Active Substance: TOBRAMYCIN
     Indication: Bronchiectasis
     Dosage: OTHER QUANTITY : 300 MG/4ML;?FREQUENCY : AS DIRECTED;?
     Route: 055
     Dates: start: 20210112
  2. ALLOPURINOL [Concomitant]
     Active Substance: ALLOPURINOL
  3. BETHKIS NEB [Concomitant]

REACTIONS (1)
  - Death [None]
